FAERS Safety Report 24801894 (Version 2)
Quarter: 2025Q1

REPORT INFORMATION
  Report Type: Spontaneous
  Country: US (occurrence: US)
  Receive Date: 20250102
  Receipt Date: 20250113
  Transmission Date: 20250408
  Serious: No
  Sender: BLUEPRINT MEDICINES
  Company Number: US-Blueprint Medicines Corporation-2024-AER-00066

PATIENT
  Age: 51 Year
  Sex: Female

DRUGS (2)
  1. AYVAKIT [Suspect]
     Active Substance: AVAPRITINIB
     Indication: Haematopoietic neoplasm
     Route: 065
     Dates: start: 202211
  2. AYVAKIT [Suspect]
     Active Substance: AVAPRITINIB
     Indication: Indolent systemic mastocytosis
     Route: 065

REACTIONS (8)
  - Migraine [Unknown]
  - Pain [Unknown]
  - Eructation [Unknown]
  - Fatigue [Unknown]
  - Swelling [Unknown]
  - Alopecia [Unknown]
  - Insomnia [Not Recovered/Not Resolved]
  - Brain fog [Not Recovered/Not Resolved]
